FAERS Safety Report 14245536 (Version 2)
Quarter: 2017Q4

REPORT INFORMATION
  Report Type: Spontaneous
  Country: CH (occurrence: CH)
  Receive Date: 20171203
  Receipt Date: 20171220
  Transmission Date: 20180321
  Serious: Yes (Hospitalization)
  Sender: FDA-Public Use
  Company Number: CH-BEH-2017085563

PATIENT
  Age: 67 Year
  Sex: Female

DRUGS (17)
  1. PRIVIGEN [Suspect]
     Active Substance: HUMAN IMMUNOGLOBULIN G
     Dosage: 4 VIALS, DOSAGE UNKNOWN
     Route: 042
     Dates: start: 20171113
  2. ALVESCO [Concomitant]
     Active Substance: CICLESONIDE
     Indication: EMPHYSEMA
  3. SINGULAIR [Concomitant]
     Active Substance: MONTELUKAST SODIUM
     Indication: EMPHYSEMA
  4. VENTOLIN [Concomitant]
     Active Substance: ALBUTEROL SULFATE
     Indication: CHRONIC OBSTRUCTIVE PULMONARY DISEASE
     Dosage: PRN (IN RESERVE)
     Route: 055
  5. FORSTEO [Concomitant]
     Active Substance: TERIPARATIDE
     Indication: OSTEOPOROSIS
     Dosage: UNK UNK, OD
     Route: 058
  6. SINGULAIR [Concomitant]
     Active Substance: MONTELUKAST SODIUM
     Indication: BRONCHIECTASIS
  7. FORADIL [Concomitant]
     Active Substance: FORMOTEROL FUMARATE
     Indication: BRONCHIECTASIS
  8. ALVESCO [Concomitant]
     Active Substance: CICLESONIDE
     Indication: CHRONIC OBSTRUCTIVE PULMONARY DISEASE
     Dosage: 160 ?G, QD (1 INHALATION PER DAY)
     Route: 055
  9. VENTOLIN [Concomitant]
     Active Substance: ALBUTEROL SULFATE
     Indication: EMPHYSEMA
  10. FORADIL [Concomitant]
     Active Substance: FORMOTEROL FUMARATE
     Indication: EMPHYSEMA
  11. SINGULAIR [Concomitant]
     Active Substance: MONTELUKAST SODIUM
     Indication: CHRONIC OBSTRUCTIVE PULMONARY DISEASE
     Dosage: 10 MG, QD
     Route: 048
  12. PRIVIGEN [Suspect]
     Active Substance: HUMAN IMMUNOGLOBULIN G
     Indication: SELECTIVE IGG SUBCLASS DEFICIENCY
     Dosage: UNK UNK, QMT
     Route: 042
     Dates: start: 2015
  13. FORADIL [Concomitant]
     Active Substance: FORMOTEROL FUMARATE
     Indication: CHRONIC OBSTRUCTIVE PULMONARY DISEASE
     Dosage: 12 ?G, BID (2 INHALATIONS PER DAY)
     Route: 055
  14. ALVESCO [Concomitant]
     Active Substance: CICLESONIDE
     Indication: BRONCHIECTASIS
  15. TIROSINT [Concomitant]
     Active Substance: LEVOTHYROXINE SODIUM
     Indication: HYPOTHYROIDISM
     Dosage: 50 ?G, QD
     Route: 048
  16. VENTOLIN [Concomitant]
     Active Substance: ALBUTEROL SULFATE
     Indication: BRONCHIECTASIS
  17. FORSTEO [Concomitant]
     Active Substance: TERIPARATIDE
     Dosage: 1 DF, OD
     Route: 058

REACTIONS (13)
  - Apnoea [Recovered/Resolved]
  - Respiratory acidosis [Recovered/Resolved]
  - Dyspnoea [Recovered/Resolved]
  - Asthmatic crisis [Recovered/Resolved]
  - Cardio-respiratory arrest [Recovered/Resolved]
  - Loss of consciousness [Recovered/Resolved]
  - Blood pressure systolic increased [Recovered/Resolved]
  - Heart rate increased [Recovered/Resolved]
  - Pruritus [Recovered/Resolved]
  - Localised oedema [Recovered/Resolved]
  - Hypersensitivity [Recovered/Resolved]
  - Bronchospasm [Recovered/Resolved]
  - Lactic acidosis [Recovered/Resolved]

NARRATIVE: CASE EVENT DATE: 20171113
